FAERS Safety Report 7549723-6 (Version None)
Quarter: 2011Q2

REPORT INFORMATION
  Report Type: 
  Country: None (occurrence: None)
  Receive Date: 20110615
  Receipt Date: 20110610
  Transmission Date: 20111010
  Serious: Yes (Hospitalization, Other)
  Sender: FDA-Public Use
  Company Number: US-ABBOTT-11P-163-0731938-00

PATIENT
  Sex: Male
  Weight: 72.186 kg

DRUGS (2)
  1. HUMIRA [Suspect]
     Dates: start: 20100910
  2. HUMIRA [Suspect]
     Indication: PSORIATIC ARTHROPATHY
     Dates: start: 20070101, end: 20100501

REACTIONS (6)
  - ABNORMAL WEIGHT GAIN [None]
  - RECTAL TENESMUS [None]
  - PSORIASIS [None]
  - RECTAL ABSCESS [None]
  - PERIPHERAL COLDNESS [None]
  - HYPOAESTHESIA [None]
